FAERS Safety Report 4310789-8 (Version None)
Quarter: 2004Q1

REPORT INFORMATION
  Report Type: 
  Country: None (occurrence: None)
  Receive Date: 20040303
  Receipt Date: 20040226
  Transmission Date: 20041129
  Serious: Yes (Hospitalization)
  Sender: FDA-Public Use
  Company Number: WAES 0402USA01986

PATIENT
  Age: 71 Year
  Sex: Male

DRUGS (2)
  1. PRIMAXIN [Suspect]
     Route: 042
     Dates: start: 20040219
  2. DIFLUCAN [Suspect]
     Dates: start: 20040222

REACTIONS (1)
  - ACQUIRED METHAEMOGLOBINAEMIA [None]
